FAERS Safety Report 25246687 (Version 1)
Quarter: 2025Q2

REPORT INFORMATION
  Report Type: Spontaneous
  Country: US (occurrence: None)
  Receive Date: 20250428
  Receipt Date: 20250428
  Transmission Date: 20250716
  Serious: No
  Sender: FDA-CTU
  Company Number: None

PATIENT
  Sex: Male

DRUGS (1)
  1. SKYRIZI [Suspect]
     Active Substance: RISANKIZUMAB-RZAA
     Indication: Psoriasis
     Route: 058

REACTIONS (8)
  - Pruritus [None]
  - Blister [None]
  - Dyspnoea [None]
  - Staphylococcal infection [None]
  - Drug ineffective [None]
  - Fungal infection [None]
  - Mental status changes [None]
  - Condition aggravated [None]
